FAERS Safety Report 9430317 (Version 1)
Quarter: 2013Q3

REPORT INFORMATION
  Report Type: Spontaneous
  Country: BR (occurrence: BR)
  Receive Date: 20130730
  Receipt Date: 20130730
  Transmission Date: 20140515
  Serious: Yes (Hospitalization, Other)
  Sender: FDA-Public Use
  Company Number: BR-GLAXOSMITHKLINE-A1034405A

PATIENT
  Age: 42 Year
  Sex: Female

DRUGS (3)
  1. ZYBAN [Suspect]
     Indication: EX-TOBACCO USER
     Dosage: 150MG IN THE MORNING
     Route: 048
     Dates: start: 20020415
  2. DIPYRONE [Concomitant]
  3. CEWIN [Concomitant]

REACTIONS (76)
  - Stevens-Johnson syndrome [Not Recovered/Not Resolved]
  - Aphagia [Unknown]
  - Conjunctivitis bacterial [Unknown]
  - Necrosis [Unknown]
  - Haemorrhage [Unknown]
  - Toxic epidermal necrolysis [Unknown]
  - Cellulitis [Unknown]
  - Hypothermia [Unknown]
  - Symblepharon [Unknown]
  - Disability [Unknown]
  - Pyrexia [Unknown]
  - Local swelling [Unknown]
  - Syncope [Unknown]
  - Lip injury [Unknown]
  - Nasal oedema [Unknown]
  - Blister [Unknown]
  - Onychomadesis [Unknown]
  - Madarosis [Unknown]
  - Fall [Unknown]
  - Conjunctivitis viral [Unknown]
  - Eye disorder [Unknown]
  - Eyelid disorder [Not Recovered/Not Resolved]
  - Vaginal disorder [Unknown]
  - Injury [Unknown]
  - Eating disorder [Unknown]
  - Conjunctivitis [Recovering/Resolving]
  - Skin plaque [Unknown]
  - Respiration abnormal [Unknown]
  - Oedema [Unknown]
  - Dysphagia [Unknown]
  - Disorientation [Unknown]
  - Oliguria [Unknown]
  - Speech disorder [Unknown]
  - Hypoalbuminaemia [Unknown]
  - Dry skin [Unknown]
  - Burns second degree [Unknown]
  - Tachycardia [Unknown]
  - Cough [Unknown]
  - Pain [Unknown]
  - Eyelid function disorder [Unknown]
  - Eye irritation [Unknown]
  - Dysgeusia [Unknown]
  - Skin lesion [Unknown]
  - Enanthema [Unknown]
  - Erythema [Unknown]
  - Ulcer [Unknown]
  - Dacryostenosis acquired [Unknown]
  - Oral disorder [Unknown]
  - Conjunctival disorder [Unknown]
  - Anaemia [Unknown]
  - Leukopenia [Unknown]
  - Lymphopenia [Unknown]
  - Platelet count decreased [Unknown]
  - Oedema mucosal [Unknown]
  - Anxiety [Unknown]
  - Discomfort [Unknown]
  - Face oedema [Recovering/Resolving]
  - Oedema mouth [Recovering/Resolving]
  - Immune system disorder [Unknown]
  - Speech disorder [Unknown]
  - Haemoptysis [Unknown]
  - Back pain [Unknown]
  - Dysuria [Unknown]
  - Nasal discomfort [Unknown]
  - Mouth ulceration [Unknown]
  - Skin exfoliation [Unknown]
  - Oral discomfort [Unknown]
  - Nasal discomfort [Unknown]
  - Eye operation [Unknown]
  - Hypersensitivity [Unknown]
  - Malaise [Unknown]
  - Trichiasis [Unknown]
  - Lacrimation increased [Unknown]
  - Entropion [Unknown]
  - Nasal discomfort [Unknown]
  - Dysgeusia [Unknown]
